FAERS Safety Report 9853341 (Version 1)
Quarter: 2014Q1

REPORT INFORMATION
  Report Type: Spontaneous
  Country: US (occurrence: US)
  Receive Date: 20140129
  Receipt Date: 20140129
  Transmission Date: 20141002
  Serious: Yes (Hospitalization)
  Sender: FDA-Public Use
  Company Number: PHHY2014US006985

PATIENT
  Age: 37 Year
  Sex: Female

DRUGS (1)
  1. VERAPAMIL [Suspect]
     Dosage: 5 DF, UNK

REACTIONS (10)
  - Hypocalcaemia [Recovering/Resolving]
  - Chest pain [Recovering/Resolving]
  - Dry mouth [Recovering/Resolving]
  - Dizziness [Recovering/Resolving]
  - Nausea [Recovering/Resolving]
  - Blood pressure decreased [Recovering/Resolving]
  - Nodal arrhythmia [Recovering/Resolving]
  - Skin warm [Recovering/Resolving]
  - Metabolic acidosis [Recovering/Resolving]
  - Overdose [Unknown]
